FAERS Safety Report 19601852 (Version 6)
Quarter: 2021Q3

REPORT INFORMATION
  Report Type: Spontaneous
  Country: GB (occurrence: GB)
  Receive Date: 20210723
  Receipt Date: 20210929
  Transmission Date: 20211014
  Serious: Yes (Hospitalization, Other)
  Sender: FDA-Public Use
  Company Number: GB-ACCORD-163327

PATIENT
  Age: 7 Year
  Sex: Male

DRUGS (7)
  1. ALFUZOSIN [Suspect]
     Active Substance: ALFUZOSIN
     Indication: PRODUCT USED FOR UNKNOWN INDICATION
     Dosage: STRENGTH: 10 MG
     Route: 065
  2. DAPTOMYCIN ACCORD [Suspect]
     Active Substance: DAPTOMYCIN
     Indication: DEVICE RELATED INFECTION
     Route: 042
  3. DUTASTERIDE. [Suspect]
     Active Substance: DUTASTERIDE
     Indication: PRODUCT USED FOR UNKNOWN INDICATION
     Dosage: 500 G, QD
     Route: 065
  4. TRAMADOL/TRAMADOL HYDROCHLORIDE [Suspect]
     Active Substance: TRAMADOL HYDROCHLORIDE
     Indication: PRODUCT USED FOR UNKNOWN INDICATION
     Dosage: STRENGTH: 50 MG
  5. LANSOPRAZOLE. [Suspect]
     Active Substance: LANSOPRAZOLE
     Indication: PRODUCT USED FOR UNKNOWN INDICATION
     Dosage: STRENGTH: 2.5 MG
  6. VANCOMYCIN [Suspect]
     Active Substance: VANCOMYCIN
     Indication: BACTERAEMIA
     Route: 042
  7. BISOPROLOL [Suspect]
     Active Substance: BISOPROLOL
     Indication: PRODUCT USED FOR UNKNOWN INDICATION
     Dosage: STRENGTH: 2.5 MG
     Route: 065

REACTIONS (10)
  - Therapeutic response delayed [Unknown]
  - Expired product administered [Unknown]
  - Product administration error [Unknown]
  - Malaise [Unknown]
  - Lower respiratory tract infection [Unknown]
  - Drug ineffective for unapproved indication [Unknown]
  - Drug dispensed to wrong patient [Unknown]
  - Antimicrobial susceptibility test resistant [Unknown]
  - Wrong patient received product [Unknown]
  - Product storage error [Unknown]
